FAERS Safety Report 6430913-0 (Version None)
Quarter: 2009Q4

REPORT INFORMATION
  Report Type: 
  Country: None (occurrence: None)
  Receive Date: 20091106
  Receipt Date: 20091102
  Transmission Date: 20100525
  Serious: Yes (Disabling, Other)
  Sender: FDA-Public Use
  Company Number: US-MERCK-0911USA00193

PATIENT
  Age: 78 Year
  Sex: Male

DRUGS (8)
  1. DECADRON [Suspect]
     Indication: DRUG USE FOR UNKNOWN INDICATION
     Route: 048
  2. THALOMID [Suspect]
     Indication: MULTIPLE MYELOMA
     Route: 048
     Dates: start: 20080701
  3. ATENOLOL [Concomitant]
     Route: 065
  4. POTASSIUM (UNSPECIFIED) [Concomitant]
     Route: 065
  5. LASIX [Concomitant]
     Route: 065
  6. LISINOPRIL [Concomitant]
     Route: 065
  7. METOPROLOL [Concomitant]
     Route: 065
  8. SPIRONOLACTONE [Concomitant]
     Route: 065

REACTIONS (2)
  - ANAEMIA [None]
  - ASTHENIA [None]
